FAERS Safety Report 17621036 (Version 1)
Quarter: 2020Q2

REPORT INFORMATION
  Report Type: Spontaneous
  Country: IT (occurrence: IT)
  Receive Date: 20200403
  Receipt Date: 20200403
  Transmission Date: 20200713
  Serious: Yes (Other)
  Sender: FDA-Public Use
  Company Number: IT-TEVA-2020-IT-1217423

PATIENT
  Age: 48 Year
  Sex: Female

DRUGS (8)
  1. CATAPRESAN [Concomitant]
     Active Substance: CLONIDINE
  2. RAMIPRIL. [Concomitant]
     Active Substance: RAMIPRIL
  3. IRON [Concomitant]
     Active Substance: IRON
  4. ALLOPURINOL. [Suspect]
     Active Substance: ALLOPURINOL
     Route: 065
     Dates: start: 20191223
  5. CALCIUM ACETATE. [Concomitant]
     Active Substance: CALCIUM ACETATE
  6. FOLINA [Concomitant]
  7. CARDURA [Concomitant]
     Active Substance: DOXAZOSIN MESYLATE
  8. DIBASE [Concomitant]
     Active Substance: CHOLECALCIFEROL

REACTIONS (2)
  - Pruritus [Unknown]
  - Erythema [Unknown]

NARRATIVE: CASE EVENT DATE: 20191223
